FAERS Safety Report 8778466 (Version 1)
Quarter: 2012Q4

REPORT INFORMATION
  Report Type: 
  Country: GB (occurrence: GB)
  Receive Date: 20120912
  Receipt Date: 20120912
  Transmission Date: 20130627
  Serious: Yes (Other)
  Sender: FDA-Public Use
  Company Number: GB-VIIV HEALTHCARE LIMITED-B0828154A

PATIENT
  Age: 4 None
  Sex: Female

DRUGS (3)
  1. KIVEXA [Suspect]
  2. RITONAVIR [Suspect]
  3. ATAZANAVIR [Suspect]

REACTIONS (1)
  - Lactic acidosis [Unknown]
